FAERS Safety Report 13639870 (Version 1)
Quarter: 2017Q2

REPORT INFORMATION
  Report Type: Spontaneous
  Country: US (occurrence: US)
  Receive Date: 20170609
  Receipt Date: 20170609
  Transmission Date: 20170830
  Serious: No
  Sender: FDA-Public Use
  Company Number: US-ROCHE-1442657

PATIENT
  Age: 57 Year
  Sex: Female
  Weight: 86.71 kg

DRUGS (2)
  1. CHANTIX [Concomitant]
     Active Substance: VARENICLINE TARTRATE
     Indication: EX-TOBACCO USER
  2. KLONOPIN [Suspect]
     Active Substance: CLONAZEPAM
     Indication: ANXIETY
     Route: 065
     Dates: start: 201407

REACTIONS (3)
  - Anxiety [Unknown]
  - Drug effect delayed [Unknown]
  - Nightmare [Recovered/Resolved]

NARRATIVE: CASE EVENT DATE: 201407
